FAERS Safety Report 7901912-4 (Version None)
Quarter: 2011Q4

REPORT INFORMATION
  Report Type: 
  Country: None (occurrence: None)
  Receive Date: 20111107
  Receipt Date: 20111107
  Transmission Date: 20120403
  Serious: Yes (Hospitalization)
  Sender: FDA-Public Use
  Company Number: None

PATIENT
  Sex: Female
  Weight: 67 kg

DRUGS (23)
  1. ADVAIR DISKUS 100/50 [Concomitant]
  2. ROBITUSSIN AC [Concomitant]
  3. GABAPENTIN [Concomitant]
  4. COLACE [Concomitant]
  5. OMEPRAZOLE [Concomitant]
  6. CARBOPLATIN [Suspect]
     Dosage: 172 MG
     Dates: end: 20111026
  7. AMBIEN [Concomitant]
  8. COMPAZINE [Concomitant]
  9. METFORMIN HCL [Concomitant]
  10. SIMVASTATIN [Concomitant]
  11. ROXICODONE [Concomitant]
  12. MSIR CONCENTRATE [Concomitant]
  13. ALLOPURINOL [Concomitant]
  14. ZITHROMAX [Concomitant]
  15. TAXOL [Suspect]
     Dosage: 84 MG
     Dates: end: 20111026
  16. BMX MOUTHWASH [Concomitant]
  17. FLUTICASONE PROPIONATE [Concomitant]
  18. TESSALON [Concomitant]
  19. ASPIRIN [Concomitant]
  20. DIOVAN [Concomitant]
  21. EMLA TOPICAL [Concomitant]
  22. MAGNESIUM HYDROXIDE TAB [Concomitant]
  23. VICODIN [Concomitant]

REACTIONS (7)
  - SEPSIS [None]
  - FEBRILE NEUTROPENIA [None]
  - ODYNOPHAGIA [None]
  - DYSPHAGIA [None]
  - PRODUCTIVE COUGH [None]
  - BRONCHITIS [None]
  - PNEUMONIA [None]
